FAERS Safety Report 7170343-X (Version None)
Quarter: 2010Q4

REPORT INFORMATION
  Report Type: 
  Country: None (occurrence: None)
  Receive Date: 20101217
  Receipt Date: 20100322
  Transmission Date: 20110411
  Serious: No
  Sender: FDA-Public Use
  Company Number: A0851385A

PATIENT
  Age: 52 Year
  Sex: Female

DRUGS (3)
  1. AVANDARYL [Suspect]
     Dosage: 1TAB PER DAY
     Route: 048
     Dates: start: 20070101
  2. LOPRESSOR [Concomitant]
  3. NIACIN [Concomitant]

REACTIONS (1)
  - BLOOD GLUCOSE DECREASED [None]
